FAERS Safety Report 5530771-2 (Version None)
Quarter: 2007Q4

REPORT INFORMATION
  Report Type: 
  Country: None (occurrence: None)
  Receive Date: 20071130
  Receipt Date: 20071120
  Transmission Date: 20080405
  Serious: Yes (Other)
  Sender: FDA-Public Use
  Company Number: US-ELI_LILLY_AND_COMPANY-US200711004678

PATIENT
  Age: 29 Year
  Sex: Male

DRUGS (3)
  1. CYMBALTA [Suspect]
     Indication: DEPRESSION
     Dosage: 30 MG, 3/D
     Dates: start: 20070401
  2. RISPERDAL [Concomitant]
     Dosage: 1 D/F, UNK
  3. TOPAMAX [Concomitant]
     Dosage: 1 D/F, UNK

REACTIONS (1)
  - GASTRIC BYPASS [None]
